FAERS Safety Report 8197993-6 (Version None)
Quarter: 2012Q1

REPORT INFORMATION
  Report Type: 
  Country: None (occurrence: None)
  Receive Date: 20120309
  Receipt Date: 20120111
  Transmission Date: 20120608
  Serious: Yes (Hospitalization)
  Sender: FDA-Public Use
  Company Number: US-AMGEN-USASP2012002022

PATIENT
  Age: 30 Year
  Sex: Female

DRUGS (1)
  1. XGEVA [Suspect]
     Indication: NEOPLASM MALIGNANT
     Dates: start: 20111206

REACTIONS (1)
  - HYPOCALCAEMIA [None]
